FAERS Safety Report 9109650 (Version 1)
Quarter: 2013Q1

REPORT INFORMATION
  Report Type: Spontaneous
  Country: US (occurrence: US)
  Receive Date: 20130222
  Receipt Date: 20130222
  Transmission Date: 20140127
  Serious: Yes (Hospitalization)
  Sender: FDA-Public Use
  Company Number: US-ASTRAZENECA-2013SE10744

PATIENT
  Age: 61 Year
  Sex: Female
  Weight: 63.5 kg

DRUGS (13)
  1. NEXIUM [Suspect]
     Indication: GASTROOESOPHAGEAL REFLUX DISEASE
     Route: 048
  2. NEXIUM [Suspect]
     Indication: GASTROOESOPHAGEAL REFLUX DISEASE
     Route: 048
  3. NEXIUM [Suspect]
     Indication: GASTROOESOPHAGEAL REFLUX DISEASE
     Route: 048
  4. METOPROLOL [Suspect]
     Indication: HYPERTENSION
     Dates: start: 2006
  5. RELAFEN [Concomitant]
     Indication: ARTHRITIS
     Route: 048
  6. CYMBALTA [Concomitant]
     Indication: DEPRESSION
     Route: 048
     Dates: start: 2006
  7. CYMBALTA [Concomitant]
     Indication: ANXIETY
     Route: 048
     Dates: start: 2006
  8. CYMBALTA [Concomitant]
     Indication: PANIC DISORDER
     Route: 048
     Dates: start: 2006
  9. ATIVAN [Concomitant]
     Indication: DEPRESSION
     Route: 048
     Dates: start: 2006
  10. ATIVAN [Concomitant]
     Indication: ANXIETY
     Route: 048
     Dates: start: 2006
  11. ATIVAN [Concomitant]
     Indication: PANIC DISORDER
     Route: 048
     Dates: start: 2006
  12. LIPITOR [Concomitant]
     Route: 048
  13. PROTONIX [Concomitant]

REACTIONS (17)
  - Blood pressure increased [Unknown]
  - Back pain [Unknown]
  - Bile duct stenosis [Unknown]
  - Chest discomfort [Unknown]
  - Dyspepsia [Unknown]
  - Burning sensation [Unknown]
  - Vomiting [Unknown]
  - Panic attack [Unknown]
  - Pain in extremity [Unknown]
  - Blood cholesterol increased [Unknown]
  - Anxiety [Unknown]
  - Chest pain [Unknown]
  - Dyspepsia [Unknown]
  - Depression [Unknown]
  - Drug dose omission [Unknown]
  - Off label use [Unknown]
  - Drug ineffective [Unknown]
